FAERS Safety Report 7241484-3 (Version None)
Quarter: 2011Q1

REPORT INFORMATION
  Report Type: 
  Country: None (occurrence: None)
  Receive Date: 20110124
  Receipt Date: 20110121
  Transmission Date: 20110831
  Serious: Yes (Life-Threatening)
  Sender: FDA-Public Use
  Company Number: FR-B.I. PHARMACEUTICALS,INC./RIDGEFIELD-2011-FF-00052FF

PATIENT
  Sex: Male

DRUGS (6)
  1. BRICANYL [Suspect]
     Indication: DYSPNOEA
     Route: 055
     Dates: start: 20101227, end: 20101227
  2. ATROVENT [Suspect]
     Indication: DYSPNOEA
     Route: 055
     Dates: start: 20101227, end: 20101227
  3. CISPLATIN [Suspect]
     Indication: OROPHARYNGEAL CANCER STAGE UNSPECIFIED
     Dosage: 40 MG
     Route: 042
     Dates: start: 20101227, end: 20101227
  4. SOLU-MEDROL [Concomitant]
     Route: 042
  5. POLARAMINE [Concomitant]
     Route: 042
  6. ERBITUX [Suspect]
     Indication: OROPHARYNGEAL CANCER STAGE UNSPECIFIED
     Dosage: 650 MG
     Route: 042
     Dates: start: 20101227, end: 20101227

REACTIONS (1)
  - ANGIOEDEMA [None]
